FAERS Safety Report 5913576-X (Version None)
Quarter: 2008Q4

REPORT INFORMATION
  Report Type: 
  Country: None (occurrence: None)
  Receive Date: 20081006
  Receipt Date: 20080922
  Transmission Date: 20090506
  Serious: Yes (Hospitalization, Other)
  Sender: FDA-Public Use
  Company Number: 239106J08USA

PATIENT
  Age: 55 Year
  Sex: Female
  Weight: 76 kg

DRUGS (6)
  1. REBIF [Suspect]
     Indication: MULTIPLE SCLEROSIS
     Dosage: 44 MCG, 3 IN 1 WEEKS, SUBCUTANEOUS
     Route: 058
     Dates: start: 20080729
  2. PLAVIX [Concomitant]
  3. JANUMET [Concomitant]
  4. LIPITOR [Concomitant]
  5. POTASSIUM (POTASSIUM /00031401/) [Concomitant]
  6. TYLENOL (COTYLENOL) /01326101/) [Concomitant]

REACTIONS (1)
  - GRAND MAL CONVULSION [None]
